FAERS Safety Report 15515597 (Version 1)
Quarter: 2018Q4

REPORT INFORMATION
  Report Type: Spontaneous
  Country: DE (occurrence: DE)
  Receive Date: 20181017
  Receipt Date: 20181017
  Transmission Date: 20190205
  Serious: Yes (Hospitalization, Other)
  Sender: FDA-Public Use
  Company Number: DE-ACCORD-071043

PATIENT
  Age: 23 Year
  Sex: Female

DRUGS (3)
  1. CLOZAPINE. [Suspect]
     Active Substance: CLOZAPINE
     Indication: SCHIZOPHRENIA
     Dosage: 75 MG/DAY?250 MG/DAY?300 MG/DAY?300-550 MG/DAY?GRADUAL INCREASE IN THE DOSE
  2. NICOTINE. [Interacting]
     Active Substance: NICOTINE
     Indication: EX-TOBACCO USER
  3. PIRENZEPINE/PIRENZEPINE DIHYDROCHLORIDE [Concomitant]
     Indication: SALIVARY HYPERSECRETION

REACTIONS (8)
  - Weight increased [Recovered/Resolved]
  - Salivary hypersecretion [Recovered/Resolved]
  - Binge eating [Recovered/Resolved]
  - Drug interaction [Unknown]
  - Vision blurred [Recovered/Resolved]
  - Overdose [Unknown]
  - Drug level increased [Recovered/Resolved]
  - Somnolence [Recovered/Resolved]
